FAERS Safety Report 23253674 (Version 1)
Quarter: 2023Q4

REPORT INFORMATION
  Report Type: Spontaneous
  Country: US (occurrence: US)
  Receive Date: 20231202
  Receipt Date: 20231202
  Transmission Date: 20240110
  Serious: Yes (Other)
  Sender: FDA-Public Use
  Company Number: US-ENDO-CASE-0047901

PATIENT
  Sex: Male

DRUGS (12)
  1. OPANA ER [Suspect]
     Active Substance: OXYMORPHONE HYDROCHLORIDE
  2. ACETAMINOPHEN\HYDROCODONE BITARTRATE [Suspect]
     Active Substance: ACETAMINOPHEN\HYDROCODONE BITARTRATE
  3. PERCOCET [Suspect]
     Active Substance: ACETAMINOPHEN\OXYCODONE HYDROCHLORIDE
  4. ACETAMINOPHEN\OXYCODONE HYDROCHLORIDE [Suspect]
     Active Substance: ACETAMINOPHEN\OXYCODONE HYDROCHLORIDE
  5. TRAMADOL HYDROCHLORIDE [Suspect]
     Active Substance: TRAMADOL HYDROCHLORIDE
  6. MORPHINE [Suspect]
     Active Substance: MORPHINE
  7. OPANA [Suspect]
     Active Substance: OXYMORPHONE HYDROCHLORIDE
  8. OXYCODONE [Suspect]
     Active Substance: OXYCODONE
  9. OXYCONTIN [Suspect]
     Active Substance: OXYCODONE HYDROCHLORIDE
  10. OXYMORPHONE HYDROCHLORIDE [Suspect]
     Active Substance: OXYMORPHONE HYDROCHLORIDE
  11. MORPHINE SULFATE [Suspect]
     Active Substance: MORPHINE SULFATE
  12. DEPODUR [Suspect]
     Active Substance: MORPHINE SULFATE

REACTIONS (1)
  - Dependence [Unknown]
